FAERS Safety Report 17476663 (Version 3)
Quarter: 2020Q2

REPORT INFORMATION
  Report Type: Spontaneous
  Country: US (occurrence: US)
  Receive Date: 20200228
  Receipt Date: 20200406
  Transmission Date: 20200713
  Serious: Yes (Other)
  Sender: FDA-Public Use
  Company Number: US-ROCHE-2554168

PATIENT
  Age: 72 Year
  Sex: Female
  Weight: 46.76 kg

DRUGS (1)
  1. TAMIFLU [Suspect]
     Active Substance: OSELTAMIVIR PHOSPHATE
     Indication: INFLUENZA
     Route: 048
     Dates: start: 20200206, end: 20200210

REACTIONS (13)
  - Laryngitis [Not Recovered/Not Resolved]
  - Protein total decreased [Unknown]
  - Delirium [Recovered/Resolved]
  - Agitation [Recovered/Resolved]
  - Eye irritation [Recovered/Resolved]
  - Diarrhoea [Recovered/Resolved]
  - Anaemia [Unknown]
  - Dyspnoea [Recovered/Resolved]
  - Paranoia [Recovered/Resolved]
  - Hepatic enzyme increased [Unknown]
  - Upper respiratory tract infection [Unknown]
  - White blood cell count increased [Recovered/Resolved]
  - Platelet count increased [Unknown]

NARRATIVE: CASE EVENT DATE: 20200207
